FAERS Safety Report 13831802 (Version 1)
Quarter: 2017Q3

REPORT INFORMATION
  Report Type: Spontaneous
  Country: US (occurrence: US)
  Receive Date: 20170803
  Receipt Date: 20170803
  Transmission Date: 20171127
  Serious: No
  Sender: FDA-Public Use
  Company Number: US-ROCHE-682865

PATIENT
  Age: 72 Year
  Sex: Female
  Weight: 80.7 kg

DRUGS (2)
  1. BONIVA [Suspect]
     Active Substance: IBANDRONATE SODIUM
     Route: 048
  2. BONIVA [Suspect]
     Active Substance: IBANDRONATE SODIUM
     Indication: OSTEOPOROSIS
     Route: 048
     Dates: start: 2004, end: 2007

REACTIONS (6)
  - Oral surgery [Unknown]
  - Mucous membrane disorder [Unknown]
  - Musculoskeletal pain [Unknown]
  - Muscle twitching [Unknown]
  - Back pain [Unknown]
  - Haemorrhage [Recovered/Resolved]

NARRATIVE: CASE EVENT DATE: 2007
